FAERS Safety Report 25575847 (Version 1)
Quarter: 2025Q3

REPORT INFORMATION
  Report Type: Spontaneous
  Country: US (occurrence: US)
  Receive Date: 20250718
  Receipt Date: 20250718
  Transmission Date: 20251021
  Serious: No
  Sender: BIOCON
  Company Number: US-BIOCON-BCN-2025-000220

PATIENT
  Sex: Female

DRUGS (1)
  1. SIMVASTATIN [Suspect]
     Active Substance: SIMVASTATIN
     Indication: Product used for unknown indication

REACTIONS (4)
  - Inflammation [Unknown]
  - Blepharitis [Unknown]
  - Skin burning sensation [Unknown]
  - Pruritus [Unknown]
